FAERS Safety Report 13586021 (Version 1)
Quarter: 2017Q2

REPORT INFORMATION
  Report Type: Spontaneous
  Country: US (occurrence: US)
  Receive Date: 20170526
  Receipt Date: 20170526
  Transmission Date: 20170830
  Serious: Yes (Other)
  Sender: FDA-Public Use
  Company Number: US-IMPAX LABORATORIES, INC-2017-IPXL-01453

PATIENT
  Age: 19 Year
  Sex: Female

DRUGS (2)
  1. ADRENACLICK [Suspect]
     Active Substance: EPINEPHRINE
     Indication: SPINAL ANAESTHESIA
     Dosage: CONCENTRATION OF 0.33 MG/L+UNK
     Route: 014
  2. ADRENACLICK [Suspect]
     Active Substance: EPINEPHRINE
     Indication: ARTHROSCOPY

REACTIONS (1)
  - Acute pulmonary oedema [Recovered/Resolved]
